FAERS Safety Report 9496530 (Version 2)
Quarter: 2013Q3

REPORT INFORMATION
  Report Type: Spontaneous
  Country: GB (occurrence: GB)
  Receive Date: 20130904
  Receipt Date: 20130913
  Transmission Date: 20140515
  Serious: Yes (Death, Other)
  Sender: FDA-Public Use
  Company Number: PHFR2013GB005013

PATIENT
  Sex: Male

DRUGS (1)
  1. CLOZARIL [Suspect]
     Indication: SCHIZOPHRENIA
     Dosage: UNK
     Route: 048
     Dates: start: 20080304

REACTIONS (5)
  - Myocardial infarction [Fatal]
  - Arteriosclerosis coronary artery [Fatal]
  - Circulatory collapse [Unknown]
  - Cardiac arrest [Unknown]
  - Pulseless electrical activity [Unknown]
